FAERS Safety Report 7815251-3 (Version None)
Quarter: 2011Q4

REPORT INFORMATION
  Report Type: 
  Country: None (occurrence: None)
  Receive Date: 20111014
  Receipt Date: 20111004
  Transmission Date: 20120403
  Serious: Yes (Other)
  Sender: FDA-Public Use
  Company Number: ES-JNJFOC-20111004197

PATIENT
  Age: 67 Year
  Sex: Female

DRUGS (3)
  1. METHOTREXATE [Concomitant]
  2. PREDNISONE [Concomitant]
     Dosage: LOW DOSE, { 10 MG/DAY
  3. REMICADE [Suspect]
     Indication: RHEUMATOID ARTHRITIS
     Dosage: 17 MONTHS
     Route: 042

REACTIONS (3)
  - HODGKIN'S DISEASE [None]
  - LEUKOCYTOCLASTIC VASCULITIS [None]
  - LYMPHOPROLIFERATIVE DISORDER [None]
